FAERS Safety Report 7291071-6 (Version None)
Quarter: 2011Q1

REPORT INFORMATION
  Report Type: 
  Country: None (occurrence: None)
  Receive Date: 20110214
  Receipt Date: 20110203
  Transmission Date: 20110831
  Serious: Yes (Hospitalization, Other)
  Sender: FDA-Public Use
  Company Number: US-ASTRAZENECA-2010SE33736

PATIENT
  Age: 26334 Day
  Sex: Female

DRUGS (5)
  1. PRILOSEC [Suspect]
     Route: 048
  2. TYLENOL [Concomitant]
     Indication: PAIN
     Dosage: AS NEEDED
     Route: 065
  3. JANTOVEN [Concomitant]
     Indication: FACTOR V LEIDEN MUTATION
     Route: 065
  4. PHENAZOPYRIDINE HCL TAB [Concomitant]
     Indication: BLADDER DISORDER
     Dosage: AS NEEDED
     Route: 065
  5. NEXIUM [Suspect]
     Indication: GASTROOESOPHAGEAL REFLUX DISEASE
     Route: 048

REACTIONS (10)
  - ANGIOEDEMA [None]
  - MULTIPLE ALLERGIES [None]
  - MYOCARDIAL INFARCTION [None]
  - LIP SWELLING [None]
  - THROMBOSIS [None]
  - HYPERTENSION [None]
  - ASTHMA [None]
  - GASTROOESOPHAGEAL REFLUX DISEASE [None]
  - DIABETES MELLITUS [None]
  - OSTEOARTHRITIS [None]
